FAERS Safety Report 22290719 (Version 2)
Quarter: 2023Q2

REPORT INFORMATION
  Report Type: Report from Study
  Country: BE (occurrence: BE)
  Receive Date: 20230505
  Receipt Date: 20230609
  Transmission Date: 20230721
  Serious: Yes (Hospitalization)
  Sender: FDA-Public Use
  Company Number: BE-ABBVIE-4754218

PATIENT
  Age: 78 Year
  Sex: Female
  Weight: 64 kg

DRUGS (10)
  1. CARBIDOPA\LEVODOPA [Suspect]
     Active Substance: CARBIDOPA\LEVODOPA
     Indication: Parkinson^s disease
     Dosage: MD 3.0 ML, CD 1.9 ML/H ED 2.5 ML AD 2.6 ML?REMAINS AT 16H
     Route: 050
     Dates: start: 20230227
  2. CARBIDOPA\LEVODOPA [Suspect]
     Active Substance: CARBIDOPA\LEVODOPA
     Dosage: MD 3.0 ML, CD 1.9 ML/H ED 1.9 ML AD 2.6 ML?REMAINS AT 16H
     Route: 050
     Dates: start: 20221004, end: 20230227
  3. CARBIDOPA\LEVODOPA [Suspect]
     Active Substance: CARBIDOPA\LEVODOPA
     Route: 050
     Dates: start: 20151102
  4. Pantomed [Concomitant]
     Indication: Product used for unknown indication
  5. ELDEPRYL [Concomitant]
     Active Substance: SELEGILINE HYDROCHLORIDE
     Indication: Product used for unknown indication
     Dosage: FREQUENCY TEXT: 8?FORM STRENGTH: 10 MG
  6. BENSERAZIDE\LEVODOPA [Concomitant]
     Active Substance: BENSERAZIDE\LEVODOPA
     Indication: Product used for unknown indication
     Dosage: FREQUENCY TEXT: AT 22
  7. REQUIP [Concomitant]
     Active Substance: ROPINIROLE HYDROCHLORIDE
     Indication: Product used for unknown indication
     Dosage: 8MG + 2MG?FREQUENCY TEXT: AT 8
  8. BENSERAZIDE\LEVODOPA [Concomitant]
     Active Substance: BENSERAZIDE\LEVODOPA
     Indication: Product used for unknown indication
     Dosage: 1/2 TABLET?FREQUENCY TEXT: AT 7
  9. STALEVO [Concomitant]
     Active Substance: CARBIDOPA\ENTACAPONE\LEVODOPA
     Indication: Product used for unknown indication
     Dosage: TIME INTERVAL: 0.33333333 DAYS: FORM STRENGTH: 50 MG
  10. STALEVO [Concomitant]
     Active Substance: CARBIDOPA\ENTACAPONE\LEVODOPA
     Indication: Product used for unknown indication
     Dosage: FORM STRENGTH: 100 MG

REACTIONS (3)
  - Hip arthroplasty [Recovering/Resolving]
  - Arthralgia [Not Recovered/Not Resolved]
  - Unevaluable event [Unknown]

NARRATIVE: CASE EVENT DATE: 20230427
